FAERS Safety Report 7468364-2 (Version None)
Quarter: 2011Q2

REPORT INFORMATION
  Report Type: 
  Country: None (occurrence: None)
  Receive Date: 20110509
  Receipt Date: 20110502
  Transmission Date: 20111010
  Serious: Yes (Hospitalization, Other)
  Sender: FDA-Public Use
  Company Number: US-PFIZER INC-2011038343

PATIENT
  Sex: Female

DRUGS (3)
  1. CHANTIX [Suspect]
     Indication: SMOKING CESSATION THERAPY
     Dosage: UNK MG, UNK
     Dates: start: 20081101, end: 20081201
  2. CHANTIX [Suspect]
     Dosage: 1 MG, UNK
     Dates: start: 20081201, end: 20090101
  3. LEVOTHYROXINE [Concomitant]
     Indication: THYROID DISORDER
     Dosage: UNK
     Dates: start: 20050101

REACTIONS (11)
  - CHEST PAIN [None]
  - AGGRESSION [None]
  - DIZZINESS [None]
  - ANXIETY [None]
  - EMOTIONAL DISTRESS [None]
  - ABNORMAL BEHAVIOUR [None]
  - IMPAIRED DRIVING ABILITY [None]
  - MENTAL DISORDER [None]
  - DISORIENTATION [None]
  - DEPRESSION [None]
  - INSOMNIA [None]
